FAERS Safety Report 9405866 (Version 3)
Quarter: 2014Q1

REPORT INFORMATION
  Report Type: Spontaneous
  Country: US (occurrence: US)
  Receive Date: 20130717
  Receipt Date: 20140326
  Transmission Date: 20141002
  Serious: Yes (Death, Hospitalization)
  Sender: FDA-Public Use
  Company Number: US-GLAXOSMITHKLINE-A1033254A

PATIENT
  Age: 35 Year
  Sex: Female
  Weight: 165.9 kg

DRUGS (1)
  1. AVANDIA [Suspect]
     Indication: DIABETES MELLITUS
     Dosage: 4MG PER DAY
     Route: 048
     Dates: start: 20050424, end: 20061030

REACTIONS (7)
  - Chronic obstructive pulmonary disease [Fatal]
  - Cerebrovascular accident [Unknown]
  - Cardiac failure chronic [Unknown]
  - Myocardial infarction [Unknown]
  - Angina pectoris [Unknown]
  - Cardiac failure congestive [Unknown]
  - Transient ischaemic attack [Unknown]
